FAERS Safety Report 5215821-5 (Version None)
Quarter: 2007Q1

REPORT INFORMATION
  Report Type: 
  Country: None (occurrence: None)
  Receive Date: 20070118
  Receipt Date: 20070109
  Transmission Date: 20070707
  Serious: Yes (Hospitalization)
  Sender: FDA-Public Use
  Company Number: 163-21880-06090767

PATIENT
  Age: 71 Year
  Sex: Female

DRUGS (1)
  1. REVLIMID [Suspect]
     Indication: MYELODYSPLASTIC SYNDROME
     Dosage: 10 MG, 1 IN1 D, ORAL
     Route: 048
     Dates: start: 20060817, end: 20060912

REACTIONS (6)
  - FATIGUE [None]
  - PLATELET COUNT DECREASED [None]
  - RED BLOOD CELL COUNT INCREASED [None]
  - SEPSIS [None]
  - STAPHYLOCOCCAL INFECTION [None]
  - WHITE BLOOD CELL COUNT DECREASED [None]
